FAERS Safety Report 5924371-X (Version None)
Quarter: 2008Q3

REPORT INFORMATION
  Report Type: 
  Country: None (occurrence: None)
  Receive Date: 20080909
  Receipt Date: 20080520
  Transmission Date: 20090109
  Serious: Yes (Death)
  Sender: FDA-Public Use
  Company Number: 163-20785-08020885

PATIENT
  Age: 62 Year
  Sex: Male

DRUGS (2)
  1. THALOMID [Suspect]
     Indication: PROSTATE CANCER
     Dosage: 50 MG, 1 IN 1 D, ORAL
     Route: 048
     Dates: start: 20070918
  2. MOTRIN [Concomitant]

REACTIONS (2)
  - PROSTATE CANCER METASTATIC [None]
  - PROSTATIC SPECIFIC ANTIGEN INCREASED [None]
